FAERS Safety Report 21497691 (Version 2)
Quarter: 2022Q4

REPORT INFORMATION
  Report Type: Other
  Country: JP (occurrence: JP)
  Receive Date: 20221024
  Receipt Date: 20221121
  Transmission Date: 20230112
  Serious: Yes (Other)
  Sender: FDA-Public Use
  Company Number: JP-CHUGAI-2022041416

PATIENT
  Age: 55 Year
  Sex: Male
  Weight: 68 kg

DRUGS (14)
  1. HERCEPTIN [Suspect]
     Active Substance: TRASTUZUMAB
     Indication: HER2 positive gastric cancer
     Route: 041
  2. CAPECITABINE [Suspect]
     Active Substance: CAPECITABINE
     Indication: HER2 positive gastric cancer
     Dosage: UNK
     Route: 048
  3. CISPLATIN [Concomitant]
     Active Substance: CISPLATIN
     Indication: HER2 positive gastric cancer
     Dosage: 146 MILLIGRAM, ONCE/3WEEKS
     Route: 041
  4. CISPLATIN [Concomitant]
     Active Substance: CISPLATIN
     Dosage: 146 MILLIGRAM, ONCE/3WEEKS
     Route: 041
  5. LANSOPRAZOLE [Concomitant]
     Active Substance: LANSOPRAZOLE
     Indication: Tumour haemorrhage
     Dosage: 30 MILLIGRAM, QD
     Route: 065
  6. APREPITANT [Concomitant]
     Active Substance: APREPITANT
     Indication: Prophylaxis of nausea and vomiting
     Dosage: 125 MILLIGRAM, QD
     Route: 048
  7. APREPITANT [Concomitant]
     Active Substance: APREPITANT
     Dosage: 80 MILLIGRAM, QD
     Route: 048
  8. DEXAMETHASONE SODIUM PHOSPHATE [Concomitant]
     Active Substance: DEXAMETHASONE SODIUM PHOSPHATE
     Indication: Prophylaxis of nausea and vomiting
     Dosage: 9.9 MILLIGRAM, QD
     Route: 042
  9. DEXAMETHASONE [Concomitant]
     Active Substance: DEXAMETHASONE
     Indication: Prophylaxis of nausea and vomiting
     Dosage: 8 MILLIGRAM, QD
     Route: 048
  10. PALONOSETRON [PALONOSETRON HYDROCHLORIDE] [Concomitant]
     Indication: Prophylaxis of nausea and vomiting
     Dosage: 0.75 MILLIGRAM, QD
     Route: 041
  11. MAGNESIUM SULFATE [Concomitant]
     Active Substance: MAGNESIUM SULFATE
     Indication: Renal disorder prophylaxis
     Dosage: 8 UNK
     Route: 042
  12. MANNITOL;SORBITOL [Concomitant]
     Indication: Renal disorder prophylaxis
     Dosage: 300 MILLILITER, QD
     Route: 065
  13. HEPARINOID [Concomitant]
     Indication: Prophylaxis
     Route: 003
  14. MYSER (JAPAN) [Concomitant]
     Indication: Prophylaxis
     Route: 003

REACTIONS (3)
  - Glomerular filtration rate decreased [Unknown]
  - Palmar-plantar erythrodysaesthesia syndrome [Unknown]
  - Hypertriglyceridaemia [Recovering/Resolving]
